FAERS Safety Report 15695559 (Version 2)
Quarter: 2019Q1

REPORT INFORMATION
  Report Type: Spontaneous
  Country: CH (occurrence: CH)
  Receive Date: 20181206
  Receipt Date: 20190125
  Transmission Date: 20190417
  Serious: Yes (Life-Threatening, Other)
  Sender: FDA-Public Use
  Company Number: CH-009507513-1812CHE001759

PATIENT
  Age: 64 Year
  Sex: Female
  Weight: 74 kg

DRUGS (7)
  1. ALIMTA [Concomitant]
     Active Substance: PEMETREXED DISODIUM
     Dosage: UNK
     Dates: start: 20181206
  2. ALLOPURINOL. [Concomitant]
     Active Substance: ALLOPURINOL
     Indication: GOUT
     Dosage: TOTAL DAILY DOSAGE: 300 MILLIGRAM
     Route: 048
  3. KEYTRUDA [Suspect]
     Active Substance: PEMBROLIZUMAB
     Indication: NON-SMALL CELL LUNG CANCER METASTATIC
     Dosage: 200 MILLIGRAM, EVERY THREE WEEKS
     Route: 042
     Dates: start: 20180828, end: 20181030
  4. CARBOPLATIN. [Concomitant]
     Active Substance: CARBOPLATIN
     Dosage: 4 CYCLES
     Dates: start: 20180828, end: 20181030
  5. TEMESTA [LORAZEPAM] [Concomitant]
     Active Substance: LORAZEPAM
     Indication: SLEEP DISORDER
     Dosage: TOTAL DAILY DOSAGE: 1 MILLIGRAM
     Route: 048
     Dates: start: 20180723
  6. ALIMTA [Concomitant]
     Active Substance: PEMETREXED DISODIUM
     Dosage: UNK
     Dates: start: 20180828, end: 20181030
  7. TARGIN [Concomitant]
     Active Substance: NALOXONE HYDROCHLORIDE\OXYCODONE HYDROCHLORIDE
     Indication: PAIN
     Dosage: TOTAL DAILY DOSAGE: 40/20MG
     Route: 048
     Dates: start: 20180730

REACTIONS (2)
  - Autoimmune haemolytic anaemia [Not Recovered/Not Resolved]
  - Immune-mediated adverse reaction [Recovering/Resolving]

NARRATIVE: CASE EVENT DATE: 2018
